FAERS Safety Report 5684714-1 (Version None)
Quarter: 2008Q1

REPORT INFORMATION
  Report Type: 
  Country: None (occurrence: None)
  Receive Date: 20080328
  Receipt Date: 19801027
  Transmission Date: 20080703
  Serious: Yes (Hospitalization)
  Sender: FDA-Public Use
  Company Number: NL-ROCHE-1670

PATIENT
  Age: 64 Year
  Sex: Female

DRUGS (2)
  1. NAPROXEN [Suspect]
     Indication: RHEUMATOID ARTHRITIS
     Route: 048
     Dates: start: 19800610, end: 19800624
  2. NAPROXEN [Suspect]
     Route: 048
     Dates: start: 19800626, end: 19800628

REACTIONS (7)
  - BLOOD CALCIUM DECREASED [None]
  - CONFUSIONAL STATE [None]
  - MALAISE [None]
  - NAUSEA [None]
  - PARAPROTEINAEMIA [None]
  - RENAL FAILURE ACUTE [None]
  - SCLERODERMA [None]
